FAERS Safety Report 9551645 (Version 1)
Quarter: 2013Q3

REPORT INFORMATION
  Report Type: Spontaneous
  Country: US (occurrence: None)
  Receive Date: 20130724
  Receipt Date: 20130724
  Transmission Date: 20140515
  Serious: Yes (Other)
  Sender: FDA-Public Use
  Company Number: PHEH2013US005021

PATIENT
  Age: 86 Year
  Sex: Female
  Weight: 54.4 kg

DRUGS (1)
  1. GLEEVEC [Suspect]
     Indication: GASTROINTESTINAL STROMAL TUMOUR
     Route: 048
     Dates: start: 20010101

REACTIONS (7)
  - Arthritis [None]
  - Anaemia [None]
  - Haemorrhage [None]
  - Renal disorder [None]
  - Decreased appetite [None]
  - Back pain [None]
  - Nail discolouration [None]
